FAERS Safety Report 24617864 (Version 1)
Quarter: 2024Q4

REPORT INFORMATION
  Report Type: Spontaneous
  Country: US (occurrence: US)
  Receive Date: 20241114
  Receipt Date: 20241114
  Transmission Date: 20250115
  Serious: No
  Sender: JOHNSON AND JOHNSON
  Company Number: US-JNJFOC-20241108505

PATIENT
  Sex: Male

DRUGS (4)
  1. TALVEY [Suspect]
     Active Substance: TALQUETAMAB-TGVS
     Indication: Plasma cell myeloma
     Route: 065
     Dates: start: 20240930
  2. TALVEY [Suspect]
     Active Substance: TALQUETAMAB-TGVS
     Route: 065
     Dates: start: 20241002
  3. TALVEY [Suspect]
     Active Substance: TALQUETAMAB-TGVS
     Route: 065
     Dates: start: 20241004
  4. TALVEY [Suspect]
     Active Substance: TALQUETAMAB-TGVS
     Route: 065
     Dates: start: 20241006

REACTIONS (14)
  - Nasal dryness [Unknown]
  - Skin exfoliation [Unknown]
  - Taste disorder [Unknown]
  - Weight decreased [Unknown]
  - Dry mouth [Unknown]
  - Stomatitis [Unknown]
  - Cough [Unknown]
  - Pruritus [Unknown]
  - Dry skin [Unknown]
  - Dysphagia [Unknown]
  - Diarrhoea [Unknown]
  - Paraesthesia [Unknown]
  - Asthenia [Unknown]
  - Fatigue [Unknown]
